FAERS Safety Report 7631836-1 (Version None)
Quarter: 2011Q3

REPORT INFORMATION
  Report Type: 
  Country: None (occurrence: None)
  Receive Date: 20110725
  Receipt Date: 20110411
  Transmission Date: 20111222
  Serious: No
  Sender: FDA-Public Use
  Company Number: US-BRISTOL-MYERS SQUIBB COMPANY-15665474

PATIENT
  Age: 55 Year
  Sex: Male
  Weight: 88 kg

DRUGS (8)
  1. JANUMET [Concomitant]
  2. LIPITOR [Concomitant]
  3. SYNTHROID [Concomitant]
  4. CALCIUM + VITAMIN D [Concomitant]
  5. COREG [Concomitant]
     Dosage: COREG CR
  6. FLECAINIDE ACETATE [Concomitant]
  7. DIOVAN HCT [Concomitant]
  8. COUMADIN [Suspect]
     Dosage: 1DF= 6-7 MG ALTERNATE DAYS.

REACTIONS (1)
  - TEMPERATURE INTOLERANCE [None]
